FAERS Safety Report 8788018 (Version 2)
Quarter: 2015Q1

REPORT INFORMATION
  Report Type: Report from Study
  Country: US (occurrence: US)
  Receive Date: 20120914
  Receipt Date: 20150331
  Transmission Date: 20150721
  Serious: Yes (Death)
  Sender: FDA-Public Use
  Company Number: US-ROCHE-1126824

PATIENT
  Age: 60 Year
  Sex: Male

DRUGS (10)
  1. CARBOPLATIN. [Concomitant]
     Active Substance: CARBOPLATIN
     Route: 042
  2. ZANTAC [Concomitant]
     Active Substance: RANITIDINE HYDROCHLORIDE
     Route: 042
  3. NEURONTIN [Concomitant]
     Active Substance: GABAPENTIN
     Route: 065
  4. DECADRON [Concomitant]
     Active Substance: DEXAMETHASONE
     Route: 042
  5. KYTRIL [Concomitant]
     Active Substance: GRANISETRON HYDROCHLORIDE
     Route: 042
  6. BENADRYL [Concomitant]
     Active Substance: DIPHENHYDRAMINE HYDROCHLORIDE
     Route: 042
  7. NEURONTIN [Concomitant]
     Active Substance: GABAPENTIN
     Route: 065
  8. AVASTIN [Suspect]
     Active Substance: BEVACIZUMAB
     Indication: OESOPHAGEAL CARCINOMA
     Route: 042
     Dates: start: 20101118
  9. TAXOL [Concomitant]
     Active Substance: PACLITAXEL
     Route: 065
  10. EMEND [Concomitant]
     Active Substance: APREPITANT
     Route: 042

REACTIONS (14)
  - Fatigue [Unknown]
  - Pain in extremity [Unknown]
  - Decreased appetite [Unknown]
  - Psoriasis [Recovering/Resolving]
  - Hypoaesthesia [Unknown]
  - Asthenia [Unknown]
  - Neuropathy peripheral [Unknown]
  - Dyspnoea exertional [Unknown]
  - Weight decreased [Unknown]
  - Insomnia [Unknown]
  - Nervousness [Unknown]
  - Musculoskeletal chest pain [Unknown]
  - Paraesthesia [Unknown]
  - Death [Fatal]

NARRATIVE: CASE EVENT DATE: 201102
